FAERS Safety Report 7445518-2 (Version None)
Quarter: 2011Q2

REPORT INFORMATION
  Report Type: 
  Country: None (occurrence: None)
  Receive Date: 20110423
  Receipt Date: 20110321
  Transmission Date: 20111010
  Serious: No
  Sender: FDA-Public Use
  Company Number: 2011-00095

PATIENT
  Age: 64 Year
  Sex: Male
  Weight: 99.7913 kg

DRUGS (1)
  1. ZICAM COLD REMEDY PLUS ORAL MIST [Suspect]
     Dosage: BID X 2 DAYS
     Dates: start: 20110320, end: 20110321

REACTIONS (1)
  - AGEUSIA [None]
